FAERS Safety Report 21978334 (Version 1)
Quarter: 2023Q1

REPORT INFORMATION
  Report Type: Spontaneous
  Country: US (occurrence: US)
  Receive Date: 20230210
  Receipt Date: 20230210
  Transmission Date: 20230418
  Serious: No
  Sender: FDA-Public Use
  Company Number: US-GSK-US2023014526

PATIENT
  Sex: Female

DRUGS (1)
  1. BENLYSTA [Suspect]
     Active Substance: BELIMUMAB
     Indication: Product used for unknown indication
     Dosage: UNK

REACTIONS (6)
  - Urticaria [Unknown]
  - Erythema [Unknown]
  - Throat irritation [Unknown]
  - Lacrimation increased [Unknown]
  - Oral discomfort [Unknown]
  - Adverse reaction [Unknown]
